FAERS Safety Report 21375061 (Version 1)
Quarter: 2022Q3

REPORT INFORMATION
  Report Type: Spontaneous
  Country: US (occurrence: US)
  Receive Date: 20220926
  Receipt Date: 20220926
  Transmission Date: 20221027
  Serious: Yes (Hospitalization, Disabling, Other)
  Sender: FDA-Public Use
  Company Number: US-009507513-1412USA003755

PATIENT
  Sex: Female
  Weight: 76.19 kg

DRUGS (3)
  1. FOSAMAX [Suspect]
     Active Substance: ALENDRONATE SODIUM
     Indication: Osteopenia
     Dosage: 10 MG, QD
     Route: 048
     Dates: start: 20000620, end: 2005
  2. FOSAMAX [Suspect]
     Active Substance: ALENDRONATE SODIUM
     Dosage: 70 MG, QW
     Route: 048
     Dates: start: 2005, end: 2008
  3. CALCIUM;MAGNESIUM [Concomitant]
     Dosage: 1000 MG, QD
     Dates: start: 2005

REACTIONS (18)
  - Intramedullary rod insertion [Not Recovered/Not Resolved]
  - Deep vein thrombosis [Unknown]
  - Medical device site irritation [Unknown]
  - Diabetes mellitus [Unknown]
  - Hysterectomy [Unknown]
  - Hypokalaemia [Unknown]
  - Femur fracture [Recovered/Resolved]
  - Tendonitis [Recovered/Resolved]
  - Extraskeletal ossification [Recovered/Resolved]
  - Hypertension [Unknown]
  - Tachycardia [Recovered/Resolved]
  - Dyslipidaemia [Unknown]
  - Peripheral venous disease [Unknown]
  - Rhinitis allergic [Unknown]
  - Blood cholesterol increased [Unknown]
  - Oedema peripheral [Not Recovered/Not Resolved]
  - Gastrooesophageal reflux disease [Unknown]
  - Body temperature increased [Recovered/Resolved]

NARRATIVE: CASE EVENT DATE: 20080101
